FAERS Safety Report 12682143 (Version 1)
Quarter: 2016Q3

REPORT INFORMATION
  Report Type: Spontaneous
  Country: US (occurrence: US)
  Receive Date: 20160824
  Receipt Date: 20160824
  Transmission Date: 20161109
  Serious: No
  Sender: FDA-Public Use
  Company Number: US-JUBILANT HOLLISTERSTIER LLC-1056726

PATIENT
  Age: 17 Year
  Sex: Female

DRUGS (9)
  1. STANDARDIZED MITE DERMATOPHAGOIDES FARINAE [Suspect]
     Active Substance: DERMATOPHAGOIDES FARINAE
     Dates: start: 20160518, end: 20160518
  2. ATROVENT [Concomitant]
     Active Substance: IPRATROPIUM BROMIDE
     Route: 045
  3. STANDARDIZED CAT HAIR [Suspect]
     Active Substance: FELIS CATUS HAIR
     Dates: start: 20160518, end: 20160518
  4. STANDARDIZED MITE DERMATOPHAGOIDES PTERONYSSINUS [Suspect]
     Active Substance: DERMATOPHAGOIDES PTERONYSSINUS
     Dates: start: 20160518, end: 20160518
  5. LEVORA [Concomitant]
     Active Substance: ETHINYL ESTRADIOL\LEVONORGESTREL
     Route: 048
  6. ANIMAL ALLERGENS, AP DOG HAIR AND DANDER CANIS SPP [Suspect]
     Active Substance: CANIS LUPUS FAMILIARIS DANDER\CANIS LUPUS FAMILIARIS HAIR
     Indication: HYPERSENSITIVITY
     Dates: start: 20160518, end: 20160518
  7. DULERA [Concomitant]
     Active Substance: FORMOTEROL FUMARATE DIHYDRATE\MOMETASONE FUROATE
     Route: 048
  8. FLONASE [Concomitant]
     Active Substance: FLUTICASONE PROPIONATE
     Route: 045
  9. ALBUTEROL. [Concomitant]
     Active Substance: ALBUTEROL
     Route: 048

REACTIONS (1)
  - Injection site hypoaesthesia [Unknown]

NARRATIVE: CASE EVENT DATE: 20160518
